FAERS Safety Report 11148716 (Version 1)
Quarter: 2015Q2

REPORT INFORMATION
  Report Type: Spontaneous
  Country: FR (occurrence: FR)
  Receive Date: 20150529
  Receipt Date: 20150529
  Transmission Date: 20150821
  Serious: Yes (Death, Life-Threatening, Hospitalization)
  Sender: FDA-Public Use
  Company Number: FR-SA-BMS16385692

PATIENT
  Age: 66 Year
  Sex: Male

DRUGS (9)
  1. APROVEL TABS 150 MG [Suspect]
     Active Substance: IRBESARTAN
     Route: 048
  2. NOVONORM [Suspect]
     Active Substance: REPAGLINIDE
     Route: 048
  3. LEVOTHYROX [Suspect]
     Active Substance: LEVOTHYROXINE
  4. INEGY [Suspect]
     Active Substance: EZETIMIBE\SIMVASTATIN
     Dosage: 1DF=10MG/40MG
     Route: 048
  5. PREVISCAN [Suspect]
     Active Substance: FLUINDIONE
     Dosage: 0.5 TAB 2 PER WEEK.
     Route: 048
  6. HYDREA [Suspect]
     Active Substance: HYDROXYUREA
     Route: 048
     Dates: start: 20111230, end: 20120104
  7. FLUDEX [Suspect]
     Active Substance: INDAPAMIDE
     Route: 048
  8. VERAPAMIL [Suspect]
     Active Substance: VERAPAMIL HYDROCHLORIDE
     Dosage: VERAPAMIL RATIOPHARM
     Route: 048
  9. SYMBICORT [Suspect]
     Active Substance: BUDESONIDE\FORMOTEROL FUMARATE DIHYDRATE
     Dosage: SYMBICORT TURBUHALER,1DF=200/6 MICRO G.
     Route: 055

REACTIONS (14)
  - Eosinophilia [Fatal]
  - Hepatocellular injury [Unknown]
  - Thrombocytopenia [Unknown]
  - Chronic kidney disease [Unknown]
  - Leukopenia [Recovered/Resolved]
  - Pleural effusion [Unknown]
  - Lung infection [Unknown]
  - Cardiogenic shock [Unknown]
  - Hypotension [Unknown]
  - Inflammation [Unknown]
  - Pericardial effusion [Unknown]
  - Hypersensitivity vasculitis [Unknown]
  - Acute respiratory distress syndrome [Unknown]
  - Toxoplasmosis [Unknown]

NARRATIVE: CASE EVENT DATE: 201104
